FAERS Safety Report 5747201-8 (Version None)
Quarter: 2008Q2

REPORT INFORMATION
  Report Type: 
  Country: None (occurrence: None)
  Receive Date: 20080520
  Receipt Date: 20080507
  Transmission Date: 20081010
  Serious: Yes (Hospitalization)
  Sender: FDA-Public Use
  Company Number: 2007BI009121

PATIENT
  Age: 53 Year
  Sex: Female
  Weight: 73.4827 kg

DRUGS (2)
  1. AVONEX [Suspect]
     Indication: MULTIPLE SCLEROSIS
     Dosage: 30 UG; QW; IM
     Route: 030
  2. CELEXA [Concomitant]

REACTIONS (4)
  - BACTERIAL INFECTION [None]
  - FATIGUE [None]
  - PYREXIA [None]
  - RENAL PAIN [None]
